FAERS Safety Report 12822159 (Version 1)
Quarter: 2016Q4

REPORT INFORMATION
  Report Type: Spontaneous
  Country: US (occurrence: US)
  Receive Date: 20161006
  Receipt Date: 20161006
  Transmission Date: 20170207
  Serious: No
  Sender: FDA-Public Use
  Company Number: US-SHIONOGI, INC-2016000385

PATIENT
  Age: 66 Year
  Sex: Female

DRUGS (6)
  1. OSPHENA [Suspect]
     Active Substance: OSPEMIFENE
     Indication: OFF LABEL USE
  2. NEURONTIN [Concomitant]
     Active Substance: GABAPENTIN
     Indication: PRODUCT USED FOR UNKNOWN INDICATION
     Dosage: 300 MG, TID
     Route: 065
  3. OSPHENA [Suspect]
     Active Substance: OSPEMIFENE
     Indication: HOT FLUSH
     Dosage: 60 MG, QD EVERY MORNING
     Route: 065
     Dates: start: 20160317
  4. FIORICET [Concomitant]
     Active Substance: ACETAMINOPHEN\BUTALBITAL\CAFFEINE
     Indication: PAIN
     Dosage: 0.5 TAB QAM
     Route: 065
  5. VALIUM [Concomitant]
     Active Substance: DIAZEPAM
     Indication: PRODUCT USED FOR UNKNOWN INDICATION
     Dosage: 5 MG, TID
     Route: 065
  6. PREMARIN [Concomitant]
     Active Substance: ESTROGENS, CONJUGATED
     Indication: PRODUCT USED FOR UNKNOWN INDICATION
     Dosage: 0.3 MG, UNK
     Route: 065
     Dates: start: 201503, end: 20160317

REACTIONS (2)
  - Off label use [Unknown]
  - Thought blocking [Unknown]

NARRATIVE: CASE EVENT DATE: 20160317
